FAERS Safety Report 11875096 (Version 4)
Quarter: 2016Q1

REPORT INFORMATION
  Report Type: Spontaneous
  Country: US (occurrence: US)
  Receive Date: 20151229
  Receipt Date: 20160118
  Transmission Date: 20160526
  Serious: No
  Sender: FDA-Public Use
  Company Number: US-BAYER-2015-495296

PATIENT
  Age: 39 Year
  Sex: Female

DRUGS (2)
  1. MIRENA [Suspect]
     Active Substance: LEVONORGESTREL
     Indication: CONTRACEPTION
     Dosage: DAILY DOSE 20 ?G
  2. MIRENA [Suspect]
     Active Substance: LEVONORGESTREL
     Indication: CONTRACEPTION
     Dosage: 20 MCG/24HR, CONT
     Route: 015
     Dates: start: 201504, end: 201511

REACTIONS (7)
  - Vaginal haemorrhage [Recovered/Resolved]
  - Vaginal odour [None]
  - Vaginal discharge [None]
  - Vulvovaginal pain [None]
  - Device malfunction [None]
  - Pelvic pain [None]
  - Device expulsion [None]

NARRATIVE: CASE EVENT DATE: 20151001
